FAERS Safety Report 10262557 (Version 1)
Quarter: 2014Q2

REPORT INFORMATION
  Report Type: Spontaneous
  Country: AR (occurrence: AR)
  Receive Date: 20140626
  Receipt Date: 20140626
  Transmission Date: 20141212
  Serious: Yes (Other)
  Sender: FDA-Public Use
  Company Number: AR-PFIZER INC-2014173045

PATIENT
  Age: 61 Year
  Sex: Female

DRUGS (1)
  1. SUTENT [Suspect]
     Indication: GASTROINTESTINAL STROMAL TUMOUR
     Dosage: 50 MG, 1X/DAY (4 WEEKS ON, 2 WEEKS OFF SCHEME)
     Dates: start: 20140418

REACTIONS (3)
  - Melanocytic naevus [Unknown]
  - Yellow skin [Recovering/Resolving]
  - Decreased immune responsiveness [Recovering/Resolving]
